FAERS Safety Report 8939837 (Version 2)
Quarter: 2012Q4

REPORT INFORMATION
  Report Type: 
  Country: US (occurrence: US)
  Receive Date: 20121203
  Receipt Date: 20121226
  Transmission Date: 20130627
  Serious: Yes (Other)
  Sender: FDA-Public Use
  Company Number: US-SANOFI-AVENTIS-2012SA085697

PATIENT
  Age: 63 Year
  Sex: Male
  Weight: 77 kg

DRUGS (5)
  1. ELOXATIN [Suspect]
     Indication: COLON CANCER
     Route: 041
     Dates: start: 20100921, end: 20100921
  2. ELOXATIN [Suspect]
     Indication: COLON CANCER
     Route: 041
     Dates: start: 20110111, end: 20110111
  3. FLUOROURACIL [Suspect]
     Route: 065
  4. LEUCOVORIN [Suspect]
     Route: 065
  5. AVASTIN [Suspect]
     Route: 065

REACTIONS (1)
  - Renal failure [Recovered/Resolved]
